FAERS Safety Report 5607671-2 (Version None)
Quarter: 2008Q1

REPORT INFORMATION
  Report Type: 
  Country: None (occurrence: None)
  Receive Date: 20080130
  Receipt Date: 20080116
  Transmission Date: 20080703
  Serious: Yes (Hospitalization)
  Sender: FDA-Public Use
  Company Number: US-AMGEN-STX261120

PATIENT
  Sex: Female

DRUGS (2)
  1. ENBREL [Suspect]
     Indication: RHEUMATOID ARTHRITIS
     Route: 058
     Dates: start: 20070907
  2. METHOTREXATE [Concomitant]
     Route: 065
     Dates: start: 19950101

REACTIONS (6)
  - CHOLECYSTECTOMY [None]
  - COUGH [None]
  - FATIGUE [None]
  - PAIN [None]
  - RESPIRATORY FAILURE [None]
  - RHINORRHOEA [None]
